FAERS Safety Report 20724698 (Version 1)
Quarter: 2022Q2

REPORT INFORMATION
  Report Type: Spontaneous
  Country: US (occurrence: None)
  Receive Date: 20220418
  Receipt Date: 20220418
  Transmission Date: 20220721
  Serious: Yes (Other)
  Sender: FDA-Public Use
  Company Number: None

PATIENT
  Age: 59 Year
  Sex: Female

DRUGS (1)
  1. VUITY [Suspect]
     Active Substance: PILOCARPINE HYDROCHLORIDE
     Indication: Eye disorder
     Dosage: OTHER QUANTITY : 1 DROP(S);?FREQUENCY : AS NEEDED;?
     Route: 047
     Dates: start: 20220408, end: 20220410

REACTIONS (9)
  - Headache [None]
  - Vision blurred [None]
  - Eye haemorrhage [None]
  - Ocular discomfort [None]
  - Asthenopia [None]
  - Eye pain [None]
  - Vision blurred [None]
  - Ocular discomfort [None]
  - Visual impairment [None]

NARRATIVE: CASE EVENT DATE: 20220412
